FAERS Safety Report 4322639-4 (Version None)
Quarter: 2004Q1

REPORT INFORMATION
  Report Type: 
  Country: None (occurrence: None)
  Receive Date: 20040324
  Receipt Date: 20031124
  Transmission Date: 20041129
  Serious: Yes (Disabling)
  Sender: FDA-Public Use
  Company Number: US-BRISTOL-MYERS SQUIBB COMPANY-12443289

PATIENT
  Age: 44 Year
  Sex: Male
  Weight: 72 kg

DRUGS (16)
  1. REYATAZ [Suspect]
     Indication: HIV TEST POSITIVE
     Route: 048
     Dates: start: 20030927
  2. EPIVIR [Concomitant]
     Dates: start: 20030924
  3. NORVIR [Concomitant]
     Dates: start: 20030924
  4. VIREAD [Concomitant]
     Dates: start: 20030924
  5. ZIAGEN [Concomitant]
     Dates: start: 20030924
  6. GLUCOPHAGE [Concomitant]
  7. NOVOLOG [Concomitant]
     Dates: start: 20010130
  8. HUMULIN [Concomitant]
     Dosage: 75/25
     Dates: start: 20010130
  9. LOPID [Concomitant]
     Dates: start: 20010425
  10. ULTRAM [Concomitant]
     Dates: start: 20010130
  11. MEXILETINE HCL [Concomitant]
     Dates: start: 20010130
  12. WARFARIN SODIUM [Concomitant]
  13. ACYCLOVIR [Concomitant]
     Dates: start: 20010130
  14. ELAVIL [Concomitant]
     Dates: start: 20010130
  15. DIFLUCAN [Concomitant]
     Dates: start: 19971201
  16. MEPRON [Concomitant]
     Dates: start: 20010130

REACTIONS (1)
  - BLOOD GLUCOSE INCREASED [None]
